FAERS Safety Report 8283462-1 (Version None)
Quarter: 2012Q2

REPORT INFORMATION
  Report Type: 
  Country: None (occurrence: None)
  Receive Date: 20120413
  Receipt Date: 20120402
  Transmission Date: 20120825
  Serious: Yes (Other)
  Sender: FDA-Public Use
  Company Number: AU-ROCHE-GNE323877

PATIENT
  Sex: Female

DRUGS (1)
  1. LUCENTIS [Suspect]
     Indication: AGE-RELATED MACULAR DEGENERATION
     Dosage: 0.5 ML, UNKNOWN
     Route: 050
     Dates: start: 20110201

REACTIONS (8)
  - ANXIETY [None]
  - DEPRESSED MOOD [None]
  - OROPHARYNGEAL PAIN [None]
  - NASOPHARYNGITIS [None]
  - INFECTION [None]
  - EYE PAIN [None]
  - MACULAR DEGENERATION [None]
  - PNEUMONIA [None]
